FAERS Safety Report 6772017-3 (Version None)
Quarter: 2010Q2

REPORT INFORMATION
  Report Type: 
  Country: None (occurrence: None)
  Receive Date: 20100616
  Receipt Date: 20090609
  Transmission Date: 20101027
  Serious: No
  Sender: FDA-Public Use
  Company Number: US-ASTRAZENECA-2009UW13095

PATIENT
  Age: 48 Year
  Sex: Female

DRUGS (1)
  1. RHINOCORT [Suspect]
     Dosage: 128 UG, 2 SPRAYS EACH NOSTRIL, DAILY
     Route: 045

REACTIONS (3)
  - EPISTAXIS [None]
  - NASAL DRYNESS [None]
  - NASAL MUCOSAL DISORDER [None]
